FAERS Safety Report 7510187-X (Version None)
Quarter: 2011Q2

REPORT INFORMATION
  Report Type: 
  Country: None (occurrence: None)
  Receive Date: 20110527
  Receipt Date: 20110516
  Transmission Date: 20111010
  Serious: Yes (Other)
  Sender: FDA-Public Use
  Company Number: PHHY2011FR42441

PATIENT
  Age: 16 Year
  Sex: Female

DRUGS (2)
  1. NEORAL [Suspect]
     Dosage: UNK
  2. ORAL CONTRACEPTIVE NOS [Concomitant]
     Dosage: UNK
     Route: 048

REACTIONS (3)
  - FATIGUE [None]
  - NAUSEA [None]
  - HEPATITIS [None]
